FAERS Safety Report 12051916 (Version 3)
Quarter: 2016Q2

REPORT INFORMATION
  Report Type: Spontaneous
  Country: JP (occurrence: JP)
  Receive Date: 20160209
  Receipt Date: 20160422
  Transmission Date: 20160815
  Serious: Yes (Other)
  Sender: FDA-Public Use
  Company Number: JP-BEH-2016058528

PATIENT

DRUGS (5)
  1. KENKETSU VENILON-I [Suspect]
     Active Substance: HUMAN IMMUNOGLOBULIN G
  2. ALBUMINAR-25 [Suspect]
     Active Substance: ALBUMIN HUMAN
  3. ALBUMINAR-5 [Suspect]
     Active Substance: ALBUMIN HUMAN
     Indication: PRODUCT USED FOR UNKNOWN INDICATION
     Route: 042
  4. NEUART [Suspect]
     Active Substance: ANTITHROMBIN III HUMAN
  5. ALBUMINAR-5 [Suspect]
     Active Substance: ALBUMIN HUMAN
     Route: 042

REACTIONS (2)
  - Suspected transmission of an infectious agent via product [Unknown]
  - Hepatitis C [Unknown]
